FAERS Safety Report 8151208-3 (Version None)
Quarter: 2012Q1

REPORT INFORMATION
  Report Type: 
  Country: None (occurrence: None)
  Receive Date: 20120220
  Receipt Date: 20120215
  Transmission Date: 20120608
  Serious: Yes (Other)
  Sender: FDA-Public Use
  Company Number: US-ASTRAZENECA-2012SE10620

PATIENT
  Age: 4 Year
  Sex: Male
  Weight: 17.2 kg

DRUGS (3)
  1. PULMICORT FLEXHALER [Suspect]
     Indication: ASTHMA
     Dosage: 1 PUFF DAILY
     Route: 055
     Dates: start: 20120204, end: 20120205
  2. PULMICORT FLEXHALER [Suspect]
     Indication: WHEEZING
     Dosage: 1 PUFF DAILY
     Route: 055
     Dates: start: 20120204, end: 20120205
  3. ALBUTEROL SO4 [Concomitant]

REACTIONS (3)
  - URTICARIA [None]
  - LIP SWELLING [None]
  - DROOLING [None]
